FAERS Safety Report 4291024-6 (Version None)
Quarter: 2004Q1

REPORT INFORMATION
  Report Type: 
  Country: None (occurrence: None)
  Receive Date: 20040211
  Receipt Date: 20031028
  Transmission Date: 20041129
  Serious: No
  Sender: FDA-Public Use
  Company Number: US-GLAXOSMITHKLINE-A0431959A

PATIENT
  Age: 83 Year
  Sex: Female

DRUGS (2)
  1. PAXIL [Suspect]
  2. AMBIEN [Concomitant]

REACTIONS (2)
  - DEPRESSION [None]
  - INSOMNIA [None]
